FAERS Safety Report 10007284 (Version 1)
Quarter: 2014Q1

REPORT INFORMATION
  Report Type: Spontaneous
  Country: CA (occurrence: None)
  Receive Date: 20140311
  Receipt Date: 20140311
  Transmission Date: 20141002
  Serious: Yes (Other)
  Sender: FDA-Public Use
  Company Number: 2014P1001832

PATIENT
  Age: 19 Year
  Sex: Female

DRUGS (11)
  1. RIFAMPIN [Suspect]
     Indication: ENDOCARDITIS
  2. VANCOMYCIN [Suspect]
     Indication: ENDOCARDITIS
  3. HEPARIN SODIUM [Concomitant]
  4. ACETYLSALICYLIC ACID [Concomitant]
  5. THIAMINE [Concomitant]
  6. PANTOPRAZOLE [Concomitant]
  7. MAGNESIUM OXIDE [Concomitant]
  8. TRAMADOL [Concomitant]
  9. SENNA [Concomitant]
  10. LACTULOSE [Concomitant]
  11. DOCUSATE SODIUM [Concomitant]

REACTIONS (8)
  - Rash papulosquamous [None]
  - Pyrexia [None]
  - Face oedema [None]
  - Rash pustular [None]
  - Blister [None]
  - Splenomegaly [None]
  - Haemoglobin decreased [None]
  - Blood creatinine increased [None]
